FAERS Safety Report 7828825-0 (Version None)
Quarter: 2011Q4

REPORT INFORMATION
  Report Type: 
  Country: None (occurrence: None)
  Receive Date: 20111020
  Receipt Date: 20111013
  Transmission Date: 20120403
  Serious: Yes (Other)
  Sender: FDA-Public Use
  Company Number: FR-BAYER-2011-099411

PATIENT
  Age: 42 Year
  Sex: Female
  Weight: 56 kg

DRUGS (6)
  1. CIPROFLOXACIN [Suspect]
     Dosage: UNK
     Dates: start: 20110722
  2. PIPERACILLIN AND TAZOBACTAM [Concomitant]
     Indication: ARTHRITIS BACTERIAL
     Dosage: 4 G, TID
     Dates: start: 20110801
  3. CLINDAMYCIN HCL [Concomitant]
     Dosage: UNK
     Dates: start: 20110827
  4. CIPROFLOXACIN [Suspect]
     Indication: WOUND INFECTION PSEUDOMONAS
     Dosage: UNK
     Dates: start: 20110624
  5. CIPROFLOXACIN [Suspect]
     Dosage: 500 MG, BID
     Route: 048
     Dates: start: 20110826, end: 20110907
  6. FUNGIZONE [Concomitant]
     Dosage: UNK
     Dates: start: 20110827

REACTIONS (2)
  - TOXIC SKIN ERUPTION [None]
  - RASH MACULO-PAPULAR [None]
